FAERS Safety Report 18360062 (Version 2)
Quarter: 2021Q1

REPORT INFORMATION
  Report Type: Spontaneous
  Country: FR (occurrence: FR)
  Receive Date: 20201008
  Receipt Date: 20210107
  Transmission Date: 20210419
  Serious: Yes (Hospitalization)
  Sender: FDA-Public Use
  Company Number: NVSC2020FR268310

PATIENT
  Age: 61 Year
  Sex: Male
  Weight: 83.6 kg

DRUGS (10)
  1. CRESTOR [Concomitant]
     Active Substance: ROSUVASTATIN CALCIUM
     Indication: HYPERCHOLESTEROLAEMIA
     Dosage: 5 MG, QD
     Route: 048
     Dates: end: 20190522
  2. EXJADE [Suspect]
     Active Substance: DEFERASIROX
     Dosage: 360 MG, QD
     Route: 048
     Dates: end: 20190523
  3. FLUCONAZOLE ARROW [Suspect]
     Active Substance: FLUCONAZOLE
     Indication: FUNGAL INFECTION
     Dosage: 400 MG, QD (2?0?0)
     Route: 048
     Dates: start: 20190524, end: 20190527
  4. EXJADE [Suspect]
     Active Substance: DEFERASIROX
     Dosage: 360 MG, QD (1?0?1)
     Route: 048
     Dates: start: 20190606, end: 20190616
  5. EXJADE [Suspect]
     Active Substance: DEFERASIROX
     Dosage: 180 MG, QD
     Route: 048
     Dates: start: 20190525, end: 20190531
  6. ATORVASTATINE ARROW [Suspect]
     Active Substance: ATORVASTATIN
     Indication: HYPERCHOLESTEROLAEMIA
     Dosage: 40 MG, QD (0?0?1)
     Route: 048
     Dates: start: 20190522, end: 20190619
  7. NOXAFIL [Suspect]
     Active Substance: POSACONAZOLE
     Indication: FUNGAL INFECTION
     Dosage: 300 MG, QD (3?0?0, END DATE REPORTED AS 21 JUN 2019)
     Route: 048
     Dates: start: 20190528
  8. EXJADE [Suspect]
     Active Substance: DEFERASIROX
     Indication: IRON OVERLOAD
     Dosage: 360 MG, QD (1?0?1)
     Route: 048
     Dates: end: 20190525
  9. PIPERACILLINE / TAZOBACTAM MYLAN [Suspect]
     Active Substance: PIPERACILLIN SODIUM\TAZOBACTAM SODIUM
     Indication: INFECTION
     Dosage: 4 DF, QD
     Route: 042
     Dates: start: 20190526, end: 20190621
  10. VALACYCLOVIR [Suspect]
     Active Substance: VALACYCLOVIR HYDROCHLORIDE
     Indication: ANTIVIRAL TREATMENT
     Dosage: 1000 MG, QD (1?0?1)
     Route: 048
     Dates: start: 20190523

REACTIONS (3)
  - Hepatocellular injury [Recovering/Resolving]
  - Cholestasis [Recovering/Resolving]
  - Condition aggravated [Recovering/Resolving]

NARRATIVE: CASE EVENT DATE: 20190530
